FAERS Safety Report 24463129 (Version 1)
Quarter: 2024Q4

REPORT INFORMATION
  Report Type: Report from Study
  Country: US (occurrence: US)
  Receive Date: 20241018
  Receipt Date: 20241018
  Transmission Date: 20250115
  Serious: No
  Sender: ROCHE
  Company Number: US-ROCHE-2195163

PATIENT
  Age: 18 Year
  Sex: Female

DRUGS (9)
  1. XOLAIR [Suspect]
     Active Substance: OMALIZUMAB
     Indication: Idiopathic urticaria
     Dosage: FREQUENCY TEXT:3 PFS
     Route: 058
  2. XOLAIR [Suspect]
     Active Substance: OMALIZUMAB
     Indication: Respiratory disorder
     Dosage: ON 08-AUG-2018, 07-SEP-2018
     Route: 058
  3. XOLAIR [Suspect]
     Active Substance: OMALIZUMAB
     Dosage: ON 07/SEP/2018, SHE RECEIVED SUBSEQUENT DOSE OF OMALIZUMAB (DOSE: 300 MG; FREQUENCY NOT REPORTED).?O
     Route: 058
     Dates: start: 20181001
  4. XOLAIR [Suspect]
     Active Substance: OMALIZUMAB
     Route: 058
  5. ZYRTEC [Concomitant]
     Active Substance: CETIRIZINE HYDROCHLORIDE
  6. ZANTAC [Concomitant]
     Active Substance: RANITIDINE HYDROCHLORIDE
     Dosage: ON 07-SEP-2018
  7. ALLEGRA [Concomitant]
     Active Substance: FEXOFENADINE HYDROCHLORIDE
  8. BENADRYL [Concomitant]
     Active Substance: DIPHENHYDRAMINE HYDROCHLORIDE
  9. PREDNISONE [Concomitant]
     Active Substance: PREDNISONE

REACTIONS (3)
  - Oropharyngeal pain [Recovering/Resolving]
  - Fatigue [Unknown]
  - Off label use [Unknown]
